FAERS Safety Report 4576480-8 (Version None)
Quarter: 2005Q1

REPORT INFORMATION
  Report Type: 
  Country: None (occurrence: None)
  Receive Date: 20050119
  Receipt Date: 20040406
  Transmission Date: 20050727
  Serious: Yes (Hospitalization)
  Sender: FDA-Public Use
  Company Number: A03200401066

PATIENT
  Age: 95 Year
  Sex: Female
  Weight: 72.5755 kg

DRUGS (6)
  1. PLAVIX [Suspect]
     Indication: TRANSIENT ISCHAEMIC ATTACK
     Dosage: 75 MG QD - ORAL
     Route: 048
     Dates: start: 20031101, end: 20040401
  2. ACETYLSALICYLIC ACID [Concomitant]
  3. TOLTERODINE TARTRATE [Concomitant]
  4. ESOMEPRAZOLE [Concomitant]
  5. METOPROLOL TARTRATE [Concomitant]
  6. PARACETAMOL [Concomitant]

REACTIONS (4)
  - DIARRHOEA [None]
  - HAEMORRHAGE [None]
  - HEADACHE [None]
  - LOWER GASTROINTESTINAL HAEMORRHAGE [None]
